FAERS Safety Report 7168782-6 (Version None)
Quarter: 2010Q4

REPORT INFORMATION
  Report Type: 
  Country: None (occurrence: None)
  Receive Date: 20101216
  Receipt Date: 20101202
  Transmission Date: 20110411
  Serious: Yes (Death)
  Sender: FDA-Public Use
  Company Number: FR-AMGEN-FRASP2010008540

PATIENT

DRUGS (3)
  1. ENBREL [Suspect]
     Indication: PSORIASIS
     Dosage: 50 MG, 2X/WEEK
     Dates: start: 20070301, end: 20070101
  2. NOVATREX [Suspect]
     Indication: PSORIASIS
     Dosage: 20 THEN 25 MG WEEKLY
  3. NEORAL [Suspect]
     Indication: PSORIASIS
     Dosage: 3 MG/KG, 1X/DAY
     Dates: start: 20070701

REACTIONS (2)
  - DRUG INEFFECTIVE [None]
  - T-CELL LYMPHOMA STAGE IV [None]
